FAERS Safety Report 14664237 (Version 1)
Quarter: 2018Q1

REPORT INFORMATION
  Report Type: Spontaneous
  Country: US (occurrence: US)
  Receive Date: 20180321
  Receipt Date: 20180321
  Transmission Date: 20180509
  Serious: Yes (Hospitalization, Other)
  Sender: FDA-Public Use
  Company Number: US-PFIZER INC-2017508626

PATIENT
  Age: 89 Year
  Sex: Female
  Weight: 75.75 kg

DRUGS (2)
  1. LETROZOLE. [Concomitant]
     Active Substance: LETROZOLE
     Indication: BREAST CANCER FEMALE
     Dosage: 2.5 MG, DAILY
     Dates: start: 201706
  2. IBRANCE [Suspect]
     Active Substance: PALBOCICLIB
     Indication: BREAST CANCER FEMALE
     Dosage: 75 MG, CYCLIC (DAILY FOR 21 DAYS AND OFF FOR 7 DAYS)
     Route: 048
     Dates: start: 201706, end: 201801

REACTIONS (7)
  - Liver injury [Recovered/Resolved]
  - Cerebrovascular accident [Unknown]
  - Drug dose omission [Unknown]
  - Pain [Unknown]
  - Post procedural complication [Recovered/Resolved]
  - Dysphagia [Unknown]
  - Somnolence [Unknown]

NARRATIVE: CASE EVENT DATE: 2017
